FAERS Safety Report 17326383 (Version 1)
Quarter: 2020Q1

REPORT INFORMATION
  Report Type: Spontaneous
  Country: US (occurrence: US)
  Receive Date: 20200127
  Receipt Date: 20200127
  Transmission Date: 20200409
  Serious: No
  Sender: FDA-Public Use
  Company Number: US-PFIZER INC-2019315315

PATIENT
  Age: 46 Year
  Sex: Female
  Weight: 122.47 kg

DRUGS (1)
  1. LYRICA [Suspect]
     Active Substance: PREGABALIN
     Indication: BURNING SENSATION
     Dosage: 300 MG, 3X/DAY
     Route: 048
     Dates: start: 20140313

REACTIONS (3)
  - Feeling abnormal [Unknown]
  - Prescribed overdose [Unknown]
  - Insomnia [Unknown]

NARRATIVE: CASE EVENT DATE: 20140313
